FAERS Safety Report 8621037 (Version 5)
Quarter: 2012Q4

REPORT INFORMATION
  Report Type: Spontaneous
  Country: US (occurrence: None)
  Receive Date: 20120606
  Receipt Date: 20120824
  Transmission Date: 20130627
  Serious: Yes (Death, Hospitalization)
  Sender: FDA-Public Use
  Company Number: 2012HGS-003672

PATIENT
  Age: 29 Year
  Sex: Female
  Weight: 73.48 kg

DRUGS (22)
  1. BENLYSTA [Suspect]
     Indication: SYSTEMIC LUPUS ERYTHEMATOSUS
     Dosage: 10 MG/KG, 1 IN 4 WK, INTRAVENOUS DRIP
     Route: 041
     Dates: start: 20120127
  2. BENLYSTA [Suspect]
     Indication: SYSTEMIC LUPUS ERYTHEMATOSUS
     Dosage: 10 MG/KG, 1 IN 4 WK, INTRAVENOUS DRIP
     Route: 041
     Dates: start: 20120210
  3. BENLYSTA [Suspect]
     Indication: SYSTEMIC LUPUS ERYTHEMATOSUS
     Dosage: 10 MG/KG, 1 IN 4 WK, INTRAVENOUS DRIP
     Route: 041
     Dates: start: 20120224
  4. BENLYSTA [Suspect]
     Indication: SYSTEMIC LUPUS ERYTHEMATOSUS
     Dosage: 10 MG/KG, 1 IN 4 WK, INTRAVENOUS DRIP
     Route: 041
     Dates: start: 20120420, end: 20120420
  5. BENLYSTA [Suspect]
  6. TRAMADOL HYDROCHLORIDE [Concomitant]
  7. PREDNISONE [Concomitant]
  8. OXYCODONE HYDROCHLORIDE [Concomitant]
  9. SAVELLA [Concomitant]
  10. FLOVENT [Concomitant]
  11. ALBUTEROL [Concomitant]
  12. IMITREX [Concomitant]
  13. PATANOL [Concomitant]
  14. CALCIUM CARBONATE [Concomitant]
  15. ACETAMINOPHEN [Concomitant]
  16. GLUCOSAMINE (GLUCOSAMINE SULFATE) [Concomitant]
  17. MULTIVITAN (VIGRAN) (ERGOCALCIFEROL, ASCORBIC ACID, PYRIDOXINE HYDROCHLORIDE, THIAMINE HYDROCHLORIDE [Concomitant]
  18. LYRICA [Concomitant]
  19. DOCUSATE SODIUM [Concomitant]
  20. CELLCEPT [Concomitant]
  21. METHOTREXATE [Concomitant]
  22. CYCLOPHOSPHAMIDE [Concomitant]

REACTIONS (33)
  - Cardiac failure congestive [None]
  - Aphasia [None]
  - Cardiogenic shock [None]
  - Multi-organ failure [None]
  - Chest pain [None]
  - Dyspnoea [None]
  - Abdominal pain [None]
  - Pyrexia [None]
  - Pleuritic pain [None]
  - Butterfly rash [None]
  - Dizziness [None]
  - Loss of consciousness [None]
  - Wheezing [None]
  - Respiratory distress [None]
  - Cardiomegaly [None]
  - Pericardial effusion [None]
  - Tricuspid valve incompetence [None]
  - Mitral valve incompetence [None]
  - Blood albumin decreased [None]
  - Blood sodium decreased [None]
  - Carbon dioxide decreased [None]
  - Blood calcium decreased [None]
  - Cardiomyopathy [None]
  - Lupus myocarditis [None]
  - Cardiotoxicity [None]
  - Renal failure acute [None]
  - Rhabdomyolysis [None]
  - Hypokalaemia [None]
  - Continuous haemodiafiltration [None]
  - Haemoglobin decreased [None]
  - Haematocrit decreased [None]
  - Compartment syndrome [None]
  - Peripheral ischaemia [None]
